FAERS Safety Report 6448067-3 (Version None)
Quarter: 2009Q4

REPORT INFORMATION
  Report Type: 
  Country: None (occurrence: None)
  Receive Date: 20091120
  Receipt Date: 20091112
  Transmission Date: 20100525
  Serious: Yes (Death, Hospitalization)
  Sender: FDA-Public Use
  Company Number: US-ROCHE-669352

PATIENT
  Age: 39 Year
  Sex: Female

DRUGS (11)
  1. TAMIFLU [Suspect]
     Indication: AVIAN INFLUENZA
     Dosage: ADMINISTERED FOR 10 DAYS
     Route: 048
  2. CEFTRIAXONE SODIUM [Suspect]
     Indication: DRUG USE FOR UNKNOWN INDICATION
     Route: 042
  3. HEPARIN SODIUM [Suspect]
     Indication: THROMBOSIS PROPHYLAXIS
     Route: 041
  4. AZITHROMYCIN [Suspect]
     Indication: DRUG USE FOR UNKNOWN INDICATION
     Route: 042
  5. CEFEPIME [Suspect]
     Indication: DRUG USE FOR UNKNOWN INDICATION
     Route: 042
  6. VANCOMYCIN [Suspect]
     Indication: DRUG USE FOR UNKNOWN INDICATION
     Route: 042
  7. NOREPINEPHRINE BITARTRATE [Suspect]
     Indication: BLOOD PRESSURE
     Route: 041
  8. PROSTACYCLIN [Suspect]
     Indication: DRUG USE FOR UNKNOWN INDICATION
     Route: 042
  9. ENOXAPARIN SODIUM [Suspect]
     Indication: THROMBOSIS PROPHYLAXIS
     Route: 065
  10. BUMETANIDE [Suspect]
     Indication: FLUID RETENTION
     Dosage: ADMINISTERED THROUGH DRIP
     Route: 065
  11. ACETAMINOPHEN [Concomitant]

REACTIONS (4)
  - DEATH [None]
  - DEEP VEIN THROMBOSIS [None]
  - PULMONARY EMBOLISM [None]
  - RENAL FAILURE ACUTE [None]
